FAERS Safety Report 5124145-6 (Version None)
Quarter: 2006Q4

REPORT INFORMATION
  Report Type: 
  Country: None (occurrence: None)
  Receive Date: 20061010
  Receipt Date: 20060425
  Transmission Date: 20070319
  Serious: No
  Sender: FDA-Public Use
  Company Number: US-BRISTOL-MYERS SQUIBB COMPANY-13356571

PATIENT
  Age: 85 Year
  Sex: Female
  Weight: 54 kg

DRUGS (5)
  1. AVAPRO [Suspect]
     Indication: HYPERTENSION
  2. ZIAC [Concomitant]
  3. CALCIUM GLUCONATE [Concomitant]
  4. ETIDRONATE SODIUM [Concomitant]
  5. MULTI-VITAMIN [Concomitant]

REACTIONS (1)
  - DYSGEUSIA [None]
